FAERS Safety Report 18906083 (Version 1)
Quarter: 2021Q1

REPORT INFORMATION
  Report Type: Report from Study
  Country: IT (occurrence: IT)
  Receive Date: 20210217
  Receipt Date: 20210217
  Transmission Date: 20210420
  Serious: Yes (Other)
  Sender: FDA-Public Use
  Company Number: IT-PFIZER INC-2021122667

PATIENT
  Age: 82 Year
  Sex: Female

DRUGS (14)
  1. PERTUZUMAB. [Suspect]
     Active Substance: PERTUZUMAB
     Indication: BREAST CANCER
     Dosage: 840 MG, EVERY 3 WEEKS
     Route: 042
     Dates: start: 20170905
  2. RANITIDINE. [Concomitant]
     Active Substance: RANITIDINE
     Dates: start: 20171129, end: 20180419
  3. DESAMETASONE [Concomitant]
     Active Substance: DEXAMETHASONE
     Dates: start: 20171010, end: 20180119
  4. FLECAINIDE [Concomitant]
     Active Substance: FLECAINIDE
  5. PACLITAXEL. [Suspect]
     Active Substance: PACLITAXEL
     Indication: BREAST CANCER
     Dosage: 100 MG, WEEKLY
     Route: 042
     Dates: start: 20170905
  6. TRASTUZUMAB. [Suspect]
     Active Substance: TRASTUZUMAB
     Indication: BREAST CANCER
     Dosage: 480 MG, EVERY 3 WEEKS
     Route: 042
     Dates: start: 20170905
  7. TAPAZOLE [Concomitant]
     Active Substance: METHIMAZOLE
  8. METFORMINA [METFORMIN] [Concomitant]
     Active Substance: METFORMIN HYDROCHLORIDE
  9. EXITELEV [Concomitant]
     Active Substance: LEVETIRACETAM
  10. COUMADIN [Concomitant]
     Active Substance: WARFARIN SODIUM
  11. POTASSIUM CHLORIDE. [Concomitant]
     Active Substance: POTASSIUM CHLORIDE
     Dates: end: 20180609
  12. BISOPROLOL [Concomitant]
     Active Substance: BISOPROLOL
  13. DIBASE [Concomitant]
     Active Substance: CHOLECALCIFEROL
  14. ZOFRAN [Concomitant]
     Active Substance: ONDANSETRON HYDROCHLORIDE
     Dates: start: 20171010, end: 20180419

REACTIONS (1)
  - Neuropathy peripheral [Recovered/Resolved]

NARRATIVE: CASE EVENT DATE: 20171102
